FAERS Safety Report 13727488 (Version 1)
Quarter: 2017Q3

REPORT INFORMATION
  Report Type: Spontaneous
  Country: US (occurrence: US)
  Receive Date: 20170707
  Receipt Date: 20170707
  Transmission Date: 20171127
  Serious: Yes (Hospitalization)
  Sender: FDA-Public Use
  Company Number: None

PATIENT
  Age: 69 Year
  Sex: Female

DRUGS (8)
  1. URSODIOL. [Concomitant]
     Active Substance: URSODIOL
  2. IBRANCE [Suspect]
     Active Substance: PALBOCICLIB
     Indication: BREAST CANCER
     Dosage: 125MG BC21 PO
     Route: 048
     Dates: start: 20170329
  3. OMEPRAZOLE. [Concomitant]
     Active Substance: OMEPRAZOLE
  4. IBUPROFEN. [Concomitant]
     Active Substance: IBUPROFEN
  5. VITAMIN D3 [Concomitant]
     Active Substance: CHOLECALCIFEROL
  6. VIACTIV [Concomitant]
     Active Substance: CALCIUM\VITAMIN D\VITAMIN K5
  7. ENOXAPARIN [Concomitant]
     Active Substance: ENOXAPARIN
  8. CENTRUM [Concomitant]
     Active Substance: VITAMINS

REACTIONS (4)
  - Nasopharyngitis [None]
  - Diarrhoea [None]
  - Cough [None]
  - Lung disorder [None]

NARRATIVE: CASE EVENT DATE: 2016
